FAERS Safety Report 10069632 (Version 2)
Quarter: 2014Q2

REPORT INFORMATION
  Report Type: Spontaneous
  Country: US (occurrence: US)
  Receive Date: 20140410
  Receipt Date: 20140507
  Transmission Date: 20141212
  Serious: No
  Sender: FDA-Public Use
  Company Number: US-SHIRE-US201401159

PATIENT
  Age: 21 Year
  Sex: Male
  Weight: 77.98 kg

DRUGS (7)
  1. VYVANSE [Suspect]
     Indication: ATTENTION DEFICIT/HYPERACTIVITY DISORDER
     Dosage: 50 MG, 1X/DAY:QD
     Route: 048
     Dates: start: 201403, end: 20140402
  2. VYVANSE [Suspect]
     Dosage: 30 MG, 1X/DAY:QD
     Route: 048
     Dates: end: 201403
  3. XANAX [Concomitant]
     Indication: PANIC ATTACK
     Dosage: 2 MG, AS REQ^D
     Route: 048
  4. XANAX [Concomitant]
     Indication: ANXIETY
     Dosage: 1 MG, AS REQ^D(HALF OF A 2 MG TABLET)
     Route: 048
  5. XANAX [Concomitant]
     Indication: IMMUNOGLOBULINS DECREASED
  6. ADDERALL [Concomitant]
     Indication: ATTENTION DEFICIT/HYPERACTIVITY DISORDER
     Dosage: 30 MG, AS REQ^D
     Route: 048
  7. ADDERALL [Concomitant]
     Dosage: 15 AS REQ^D(HALF OF A 30 MG TABLET)
     Route: 048

REACTIONS (5)
  - Drug ineffective [Recovered/Resolved]
  - Anxiety [Recovered/Resolved]
  - Abdominal discomfort [Recovered/Resolved]
  - Affect lability [Recovered/Resolved]
  - Product quality issue [Recovered/Resolved]
